FAERS Safety Report 15552603 (Version 3)
Quarter: 2018Q4

REPORT INFORMATION
  Report Type: Spontaneous
  Country: MX (occurrence: MX)
  Receive Date: 20181025
  Receipt Date: 20181126
  Transmission Date: 20190205
  Serious: Yes (Hospitalization, Other)
  Sender: FDA-Public Use
  Company Number: MX-ELI_LILLY_AND_COMPANY-MX201810009508

PATIENT
  Age: 55 Year
  Sex: Male
  Weight: 60 kg

DRUGS (4)
  1. CAPECITABINE. [Concomitant]
     Active Substance: CAPECITABINE
     Indication: HEAD AND NECK CANCER
     Dosage: 6 DF, DAILY
  2. ERBITUX [Suspect]
     Active Substance: CETUXIMAB
     Dosage: 385 MG, WEEKLY (1/W)
     Route: 042
     Dates: start: 20181018
  3. CARBOPLATIN. [Concomitant]
     Active Substance: CARBOPLATIN
     Indication: HEAD AND NECK CANCER
     Dosage: 300 MG, UNKNOWN
  4. ERBITUX [Suspect]
     Active Substance: CETUXIMAB
     Indication: HEAD AND NECK CANCER
     Dosage: 616 MG, UNKNOWN
     Route: 042
     Dates: start: 20181011

REACTIONS (7)
  - Platelet count decreased [Recovering/Resolving]
  - Tumour pain [Unknown]
  - Blood glucose decreased [Recovering/Resolving]
  - Immunodeficiency [Recovering/Resolving]
  - White blood cell count decreased [Recovering/Resolving]
  - Hypotension [Recovering/Resolving]
  - Off label use [Unknown]

NARRATIVE: CASE EVENT DATE: 20181011
